FAERS Safety Report 7629723-8 (Version None)
Quarter: 2011Q3

REPORT INFORMATION
  Report Type: 
  Country: None (occurrence: None)
  Receive Date: 20110722
  Receipt Date: 20110714
  Transmission Date: 20111222
  Serious: Yes (Hospitalization, Other)
  Sender: FDA-Public Use
  Company Number: BR-BAYER-2011-043273

PATIENT
  Age: 54 Year
  Sex: Female
  Weight: 64 kg

DRUGS (10)
  1. LACTULON [Concomitant]
     Indication: FUNCTIONAL GASTROINTESTINAL DISORDER
     Dosage: 15 ML, BID
     Route: 048
     Dates: start: 20090501
  2. NARIDRIN [Concomitant]
     Indication: NASAL CONGESTION
     Dosage: 1 OR 2 DROPS IN EACH NOSTRIL WHEN NEEDED
  3. BISACODYL [Concomitant]
     Indication: LAXATIVE SUPPORTIVE CARE
     Dosage: 1 DF, QOD
     Route: 048
     Dates: start: 19910101
  4. HYDROCHLOROTHIAZIDE [Concomitant]
     Indication: HYPERTENSION
     Dosage: 1 DF, QD
     Route: 048
     Dates: start: 20000101
  5. SORAFENIB (RAF KINASE INHIBITOR) [Suspect]
     Dosage: 400 MG, BID
     Route: 048
     Dates: start: 20090201, end: 20100201
  6. SORAFENIB (RAF KINASE INHIBITOR) [Suspect]
     Dosage: 600 MG, QD
     Route: 048
     Dates: start: 20110301
  7. BROMOPRIDE [Concomitant]
     Indication: PRODUCT USED FOR UNKNOWN INDICATION
     Dosage: 2 DF, QD
     Route: 048
     Dates: start: 20110101, end: 20110101
  8. OMEPRAZOLE [Concomitant]
     Indication: GASTRITIS
     Dosage: 2 DF, QD
     Route: 048
     Dates: start: 20070101
  9. SORAFENIB (RAF KINASE INHIBITOR) [Suspect]
     Indication: HEPATIC NEOPLASM MALIGNANT
     Dosage: 600 MG, QD
     Route: 048
     Dates: start: 20110419
  10. HYGROTON [Concomitant]
     Indication: HYPERTENSION
     Dosage: 1 DF, QD
     Route: 048
     Dates: start: 20000101

REACTIONS (24)
  - THROMBOSIS [None]
  - IMMUNE SYSTEM DISORDER [None]
  - INFLUENZA [None]
  - DEPRESSED LEVEL OF CONSCIOUSNESS [None]
  - HEART RATE INCREASED [None]
  - CHILLS [None]
  - BURNING SENSATION [None]
  - HEPATIC ENZYME ABNORMAL [None]
  - ALOPECIA [None]
  - PAIN IN EXTREMITY [None]
  - SKIN DISCOLOURATION [None]
  - PAIN [None]
  - SKIN EXFOLIATION [None]
  - ERYTHEMA [None]
  - PULMONARY THROMBOSIS [None]
  - MUSCULAR WEAKNESS [None]
  - DYSPNOEA [None]
  - MALAISE [None]
  - SINUSITIS [None]
  - MEMORY IMPAIRMENT [None]
  - VISUAL IMPAIRMENT [None]
  - DIZZINESS [None]
  - PYREXIA [None]
  - HYPERKERATOSIS [None]
